FAERS Safety Report 9674959 (Version 1)
Quarter: 2013Q4

REPORT INFORMATION
  Report Type: Spontaneous
  Country: US (occurrence: None)
  Receive Date: 20131106
  Receipt Date: 20131106
  Transmission Date: 20140711
  Serious: No
  Sender: FDA-Public Use
  Company Number: None

PATIENT
  Age: 53 Year
  Sex: Female

DRUGS (2)
  1. QUETIAPINE FUMARATE [Suspect]
  2. TOPIRAMATE [Suspect]

REACTIONS (4)
  - Depression [None]
  - Anxiety [None]
  - Headache [None]
  - Insomnia [None]
